FAERS Safety Report 7162978-5 (Version None)
Quarter: 2010Q4

REPORT INFORMATION
  Report Type: 
  Country: None (occurrence: None)
  Receive Date: 20101215
  Receipt Date: 20100205
  Transmission Date: 20110411
  Serious: Yes (Death, Hospitalization)
  Sender: FDA-Public Use
  Company Number: GB-PFIZER INC-2007079997

PATIENT
  Age: 56 Year
  Sex: Female

DRUGS (16)
  1. PREGABALIN [Suspect]
     Indication: NEURALGIA
     Dosage: 75 MG, 2X/DAY
     Route: 048
     Dates: start: 20070101, end: 20070801
  2. ANASTROZOLE [Concomitant]
     Dosage: 1 MG, 1X/DAY
     Route: 048
  3. CITALOPRAM [Concomitant]
     Indication: DEPRESSION
     Dosage: 40 MG, 1X/DAY
     Route: 048
     Dates: start: 20070201, end: 20070801
  4. CODEINE [Concomitant]
     Indication: PAIN
     Dosage: 600 MG, 1X/DAY
     Route: 048
     Dates: end: 20070801
  5. FENTANYL [Concomitant]
     Indication: PAIN
     Dosage: 200 UG, UNK
     Route: 048
     Dates: start: 20060901
  6. FENTANYL [Concomitant]
     Dosage: 75 UG, EVERY HOUR
     Route: 061
     Dates: start: 20060901
  7. LANSOPRAZOLE [Concomitant]
     Dosage: 30 MG, UNK
     Route: 048
  8. MAGNESIUM [Concomitant]
  9. MOVICOL [Concomitant]
  10. OXYCONTIN [Concomitant]
     Indication: PAIN
     Dosage: 20 MG, 2X/DAY
     Route: 048
     Dates: start: 20060401
  11. PARACETAMOL [Concomitant]
     Indication: PAIN
     Dosage: 1 G, 4X/DAY
     Route: 048
  12. PREDNISOLONE [Concomitant]
     Indication: THROMBOCYTOPENIA
     Dosage: 2.5 MG, 1X/DAY
     Route: 048
     Dates: start: 20070601, end: 20070901
  13. RISPERIDONE [Concomitant]
     Indication: MAJOR DEPRESSION
     Dosage: 1 MG, 1X/DAY
     Route: 048
     Dates: start: 20070501, end: 20070801
  14. SENNA [Concomitant]
  15. ZOMETA [Concomitant]
     Indication: BONE DISORDER
     Dosage: 4 MG, UNK
     Route: 042
  16. OXYCODONE HCL [Concomitant]
     Route: 048
     Dates: start: 20060401

REACTIONS (4)
  - DEATH [None]
  - JAUNDICE [None]
  - LIVER FUNCTION TEST ABNORMAL [None]
  - THROMBOCYTOPENIA [None]
